FAERS Safety Report 4723850-0 (Version None)
Quarter: 2005Q3

REPORT INFORMATION
  Report Type: 
  Country: None (occurrence: None)
  Receive Date: 20050721
  Receipt Date: 20050701
  Transmission Date: 20060218
  Serious: Yes (Other)
  Sender: FDA-Public Use
  Company Number: USA050291751

PATIENT
  Age: 69 Year
  Sex: Female

DRUGS (1)
  1. FORTEO [Suspect]
     Indication: OSTEOPOROSIS
     Dates: start: 20040901, end: 20050225

REACTIONS (3)
  - BREAST CANCER FEMALE [None]
  - CATARACT [None]
  - PHARMACEUTICAL PRODUCT COMPLAINT [None]
